FAERS Safety Report 4384382-5 (Version None)
Quarter: 2004Q2

REPORT INFORMATION
  Report Type: 
  Country: None (occurrence: None)
  Receive Date: 20040607
  Receipt Date: 20031103
  Transmission Date: 20050107
  Serious: Yes (Other)
  Sender: FDA-Public Use
  Company Number: 350629

PATIENT
  Sex: 0

DRUGS (2)
  1. ISOTRETINOIN [Suspect]
     Indication: ACNE
     Dosage: 10 MG  5 PER DAY  ORAL
     Route: 048
     Dates: start: 20020815, end: 20030115
  2. NAPROXEN [Concomitant]

REACTIONS (1)
  - PREGNANCY [None]
